FAERS Safety Report 5815238-6 (Version None)
Quarter: 2008Q3

REPORT INFORMATION
  Report Type: 
  Country: None (occurrence: None)
  Receive Date: 20080718
  Receipt Date: 20080714
  Transmission Date: 20090109
  Serious: Yes (Hospitalization)
  Sender: FDA-Public Use
  Company Number: US-BOEHRINGER INGELHEIM GMBH, GERMANY-2008-BP-10990RO

PATIENT
  Sex: Female
  Weight: 159 kg

DRUGS (9)
  1. DEXAMETHASONE [Suspect]
     Indication: HYPERADRENALISM
     Route: 048
  2. DEXAMETHASONE [Suspect]
     Indication: ADRENAL INSUFFICIENCY
  3. LEVOXYL [Concomitant]
     Route: 048
  4. ZETIA [Concomitant]
     Indication: BLOOD CHOLESTEROL INCREASED
     Route: 048
  5. LOVAZA [Concomitant]
     Indication: BLOOD CHOLESTEROL INCREASED
     Route: 048
  6. NEXIUM [Concomitant]
     Indication: GASTROOESOPHAGEAL REFLUX DISEASE
     Route: 048
  7. CABERGOLINE [Concomitant]
     Indication: PITUITARY TUMOUR BENIGN
     Route: 048
  8. METFORMIN HCL ER [Concomitant]
     Indication: BLOOD INSULIN INCREASED
     Route: 048
  9. ZYRTEC [Concomitant]
     Route: 048

REACTIONS (1)
  - COUGH [None]
